FAERS Safety Report 8026994-3 (Version None)
Quarter: 2011Q4

REPORT INFORMATION
  Report Type: 
  Country: None (occurrence: None)
  Receive Date: 20111130
  Receipt Date: 20110808
  Transmission Date: 20120403
  Serious: Yes (Hospitalization, Other)
  Sender: FDA-Public Use
  Company Number: US201008003449

PATIENT
  Age: 43 Year
  Sex: Male
  Weight: 129.3 kg

DRUGS (9)
  1. GLUCOPHAGE [Concomitant]
  2. PAXIL [Concomitant]
  3. ALBUTEROL [Concomitant]
  4. BYETTA [Suspect]
     Indication: TYPE 2 DIABETES MELLITUS
     Dates: start: 20060810, end: 20071009
  5. LORCET-HD [Concomitant]
  6. PROTONIX [Concomitant]
  7. METFORMIN HCL [Concomitant]
  8. PREDNISONE TAB [Concomitant]
  9. LANTUS [Concomitant]

REACTIONS (2)
  - PANCREATITIS ACUTE [None]
  - OFF LABEL USE [None]
